FAERS Safety Report 4430497-2 (Version None)
Quarter: 2004Q3

REPORT INFORMATION
  Report Type: 
  Country: None (occurrence: None)
  Receive Date: 20040721
  Receipt Date: 20031209
  Transmission Date: 20050211
  Serious: Yes (Hospitalization)
  Sender: FDA-Public Use
  Company Number: WAES 0312USA01072

PATIENT
  Age: 90 Year
  Sex: Female

DRUGS (4)
  1. VIOXX [Suspect]
     Indication: ARTHRALGIA
     Dosage: 12.5 MG/DAILY/PO
     Route: 048
     Dates: start: 20021001, end: 20031126
  2. NORVASC [Concomitant]
  3. TARKA [Concomitant]
  4. FUROSEMIDE [Concomitant]

REACTIONS (1)
  - GASTROINTESTINAL HAEMORRHAGE [None]
